FAERS Safety Report 7224520-X (Version None)
Quarter: 2011Q1

REPORT INFORMATION
  Report Type: 
  Country: None (occurrence: None)
  Receive Date: 20110113
  Receipt Date: 20110107
  Transmission Date: 20110831
  Serious: No
  Sender: FDA-Public Use
  Company Number: US-PFIZER INC-2011005912

PATIENT
  Age: 66 Year
  Sex: Female
  Weight: 63.492 kg

DRUGS (4)
  1. CRESTOR [Concomitant]
  2. NEXIUM [Concomitant]
  3. ALAVERT [Suspect]
     Indication: NASOPHARYNGITIS
     Dosage: 1 TABLET
     Route: 048
     Dates: start: 20110103, end: 20110104
  4. ROBITUSSIN COUGH AND COLD CF [Suspect]
     Indication: NASOPHARYNGITIS
     Dosage: 2 TEASPOONS
     Route: 048
     Dates: start: 20110104

REACTIONS (3)
  - FATIGUE [None]
  - OROPHARYNGEAL PAIN [None]
  - VISION BLURRED [None]
